FAERS Safety Report 13963217 (Version 1)
Quarter: 2017Q3

REPORT INFORMATION
  Report Type: Report from Study
  Country: None (occurrence: US)
  Receive Date: 20170913
  Receipt Date: 20170913
  Transmission Date: 20171128
  Serious: Yes (Hospitalization)
  Sender: FDA-Public Use
  Company Number: US-ABBVIE-17K-163-2095219-00

PATIENT
  Sex: Female

DRUGS (1)
  1. HUMIRA [Suspect]
     Active Substance: ADALIMUMAB
     Indication: CROHN^S DISEASE
     Route: 058
     Dates: start: 20170126, end: 20170801

REACTIONS (6)
  - Oral fungal infection [Unknown]
  - Rheumatoid arthritis [Unknown]
  - Pneumonia fungal [Recovering/Resolving]
  - Infectious pleural effusion [Recovering/Resolving]
  - Pneumonia bacterial [Recovering/Resolving]
  - Psoriasis [Unknown]

NARRATIVE: CASE EVENT DATE: 2017
